FAERS Safety Report 9963133 (Version 1)
Quarter: 2014Q1

REPORT INFORMATION
  Report Type: Spontaneous
  Country: US (occurrence: US)
  Receive Date: 20140305
  Receipt Date: 20140305
  Transmission Date: 20141002
  Serious: Yes (Death, Hospitalization)
  Sender: FDA-Public Use
  Company Number: US-CUBIST PHARMACEUTICAL, INC.-2014CBST000321

PATIENT
  Sex: 0

DRUGS (3)
  1. CUBICIN [Suspect]
     Indication: ARTERIOVENOUS GRAFT SITE INFECTION
     Dosage: 9.65 MG/KG, Q48H
     Route: 065
  2. CUBICIN [Suspect]
     Indication: STAPHYLOCOCCAL BACTERAEMIA
  3. CUBICIN [Suspect]
     Indication: OFF LABEL USE

REACTIONS (4)
  - Septic shock [Fatal]
  - Cardiac arrest [Fatal]
  - Staphylococcal bacteraemia [Fatal]
  - Antimicrobial susceptibility test resistant [Fatal]
